FAERS Safety Report 7622657-4 (Version None)
Quarter: 2011Q3

REPORT INFORMATION
  Report Type: 
  Country: None (occurrence: None)
  Receive Date: 20110719
  Receipt Date: 20110719
  Transmission Date: 20111222
  Serious: No
  Sender: FDA-Public Use
  Company Number: None

PATIENT
  Sex: Female

DRUGS (1)
  1. MAXZIDE [Suspect]
     Indication: HYPERTENSION
     Dosage: 75-50MG 1 QD PO UNKNOWN
     Route: 048

REACTIONS (1)
  - DIZZINESS [None]
